FAERS Safety Report 17721168 (Version 4)
Quarter: 2020Q2

REPORT INFORMATION
  Report Type: Report from Study
  Country: US (occurrence: US)
  Receive Date: 20200429
  Receipt Date: 20200604
  Transmission Date: 20200714
  Serious: Yes (Other)
  Sender: FDA-Public Use
  Company Number: US-009507513-2004USA008110

PATIENT
  Age: 20 Year
  Sex: Female
  Weight: 80.73 kg

DRUGS (1)
  1. IMPLANON [Suspect]
     Active Substance: ETONOGESTREL
     Indication: CONTRACEPTION
     Dosage: 1 IMPLANT ROD (1 DOSAGE FORM, STRENGTH: 68 MG) FOR 3 YEARS (LEFT ARM)
     Route: 059
     Dates: start: 20191015

REACTIONS (5)
  - Implant site pain [Not Recovered/Not Resolved]
  - Device expulsion [Not Recovered/Not Resolved]
  - Device dislocation [Not Recovered/Not Resolved]
  - Implant site irritation [Not Recovered/Not Resolved]
  - Implant site erythema [Not Recovered/Not Resolved]

NARRATIVE: CASE EVENT DATE: 2020
